FAERS Safety Report 18957299 (Version 1)
Quarter: 2021Q1

REPORT INFORMATION
  Report Type: Spontaneous
  Country: US (occurrence: US)
  Receive Date: 20210301
  Receipt Date: 20210301
  Transmission Date: 20210420
  Serious: Yes (Other)
  Sender: FDA-Public Use
  Company Number: None

PATIENT
  Age: 73 Year
  Sex: Male

DRUGS (3)
  1. UPTRAVI [Concomitant]
     Active Substance: SELEXIPAG
  2. SILDENAFIL. [Concomitant]
     Active Substance: SILDENAFIL
  3. LETAIRIS [Suspect]
     Active Substance: AMBRISENTAN
     Route: 048

REACTIONS (2)
  - Product dose omission issue [None]
  - Loss of consciousness [None]

NARRATIVE: CASE EVENT DATE: 20210210
